FAERS Safety Report 4386166-0 (Version None)
Quarter: 2004Q2

REPORT INFORMATION
  Report Type: 
  Country: None (occurrence: None)
  Receive Date: 20040629
  Receipt Date: 20040617
  Transmission Date: 20050107
  Serious: Yes (Other)
  Sender: FDA-Public Use
  Company Number: PHBS2004CO08237

PATIENT
  Age: 60 Year
  Sex: Female

DRUGS (5)
  1. LESCOL XL [Suspect]
     Indication: DYSLIPIDAEMIA
     Dosage: 80 MG, QD
     Route: 048
     Dates: start: 20040201, end: 20040501
  2. LESCOL XL [Suspect]
     Dosage: 80 MG, QD
     Route: 048
     Dates: start: 20040601
  3. FLUCONAZOLE [Concomitant]
  4. CALCIUM [Concomitant]
  5. VITAMIN E [Concomitant]
     Dosage: 1 DF, QD
     Route: 048

REACTIONS (3)
  - CATARACT OPERATION [None]
  - DIZZINESS [None]
  - LENS IMPLANT [None]
